FAERS Safety Report 10735665 (Version 4)
Quarter: 2016Q1

REPORT INFORMATION
  Report Type: Report from Study
  Country: GB (occurrence: GB)
  Receive Date: 20150126
  Receipt Date: 20160104
  Transmission Date: 20160525
  Serious: Yes (Other)
  Sender: FDA-Public Use
  Company Number: GB-ROCHE-1525602

PATIENT
  Sex: Female

DRUGS (1)
  1. ROACTEMRA [Suspect]
     Active Substance: TOCILIZUMAB
     Indication: RHEUMATOID ARTHRITIS
     Route: 058
     Dates: start: 20150105

REACTIONS (9)
  - Depressed mood [Unknown]
  - Influenza [Unknown]
  - Stress [Unknown]
  - Fall [Unknown]
  - Syncope [Unknown]
  - Head injury [Unknown]
  - Cough [Unknown]
  - Herpes zoster [Unknown]
  - Drug dose omission [Unknown]
